FAERS Safety Report 7530485-3 (Version None)
Quarter: 2011Q2

REPORT INFORMATION
  Report Type: 
  Country: None (occurrence: None)
  Receive Date: 20110607
  Receipt Date: 20110531
  Transmission Date: 20111010
  Serious: Yes (Hospitalization)
  Sender: FDA-Public Use
  Company Number: US-ABBOTT-11P-163-0729530-00

PATIENT
  Sex: Male

DRUGS (2)
  1. STELARA [Suspect]
     Indication: PSORIASIS
     Dates: start: 20110201, end: 20110501
  2. HUMIRA [Suspect]
     Indication: PSORIASIS
     Dates: start: 20090101, end: 20110101

REACTIONS (7)
  - CORONARY ARTERY OCCLUSION [None]
  - PSORIASIS [None]
  - VASCULAR OCCLUSION [None]
  - FACIAL PAIN [None]
  - PULSE ABSENT [None]
  - OROPHARYNGEAL PAIN [None]
  - BALANCE DISORDER [None]
